FAERS Safety Report 9218672 (Version 1)
Quarter: 2013Q2

REPORT INFORMATION
  Report Type: Spontaneous
  Country: US (occurrence: None)
  Receive Date: 20130405
  Receipt Date: 20130405
  Transmission Date: 20140414
  Serious: Yes (Other)
  Sender: FDA-Public Use
  Company Number: None

PATIENT
  Age: 65 Year
  Sex: Male
  Weight: 94.5 kg

DRUGS (1)
  1. PROPRANOLOL [Suspect]
     Dates: start: 20130124

REACTIONS (3)
  - Abdominal pain [None]
  - Abdominal pain [None]
  - Abdominal discomfort [None]
